FAERS Safety Report 8393166-2 (Version None)
Quarter: 2012Q2

REPORT INFORMATION
  Report Type: 
  Country: None (occurrence: None)
  Receive Date: 20120529
  Receipt Date: 20120430
  Transmission Date: 20120825
  Serious: No
  Sender: FDA-Public Use
  Company Number: US-ABBOTT-12P-163-0931774-00

PATIENT
  Sex: Male
  Weight: 62.198 kg

DRUGS (2)
  1. ANDROGEL [Suspect]
     Indication: BLOOD TESTOSTERONE DECREASED
     Dosage: 4 PUMPS PER DAY, APPLIES TO SHOULDERS.
     Dates: start: 20120320, end: 20120322
  2. SIMVASTATIN [Concomitant]
     Indication: BLOOD CHOLESTEROL

REACTIONS (4)
  - GAIT DISTURBANCE [None]
  - DIZZINESS [None]
  - ANXIETY [None]
  - DYSPNOEA [None]
